FAERS Safety Report 5576343-5 (Version None)
Quarter: 2007Q4

REPORT INFORMATION
  Report Type: 
  Country: None (occurrence: None)
  Receive Date: 20071228
  Receipt Date: 20071217
  Transmission Date: 20080405
  Serious: Yes (Hospitalization)
  Sender: FDA-Public Use
  Company Number: TR-ROCHE-537409

PATIENT
  Age: 48 Year
  Sex: Female

DRUGS (2)
  1. RIBAVIRIN [Suspect]
     Route: 065
     Dates: start: 20030101
  2. PEG-INTERFERON ALFA 2B [Suspect]
     Route: 058
     Dates: start: 20030101

REACTIONS (1)
  - MYASTHENIA GRAVIS [None]
